FAERS Safety Report 8257175-6 (Version None)
Quarter: 2012Q1

REPORT INFORMATION
  Report Type: 
  Country: None (occurrence: None)
  Receive Date: 20120322
  Receipt Date: 20120228
  Transmission Date: 20120608
  Serious: Yes (Hospitalization)
  Sender: FDA-Public Use
  Company Number: UTC-015784

PATIENT
  Age: 66 Year
  Sex: Male
  Weight: 76.5 kg

DRUGS (4)
  1. COUMADIN [Suspect]
  2. TYVASO [Suspect]
     Indication: COR PULMONALE CHRONIC
     Dosage: 48 MCG (12 MCG, 4 IN 1 D), INHALATION
     Route: 055
     Dates: start: 20120204
  3. DIURETICS (DIURETICS) [Concomitant]
  4. ADCIRCA [Concomitant]

REACTIONS (6)
  - BLOOD URINE PRESENT [None]
  - CEREBRAL HAEMORRHAGE [None]
  - INTERNATIONAL NORMALISED RATIO INCREASED [None]
  - ACUTE RESPIRATORY FAILURE [None]
  - CONVULSION [None]
  - SEPTIC SHOCK [None]
